FAERS Safety Report 23791292 (Version 1)
Quarter: 2024Q2

REPORT INFORMATION
  Report Type: Spontaneous
  Country: CN (occurrence: CN)
  Receive Date: 20240428
  Receipt Date: 20240428
  Transmission Date: 20240716
  Serious: Yes (Hospitalization)
  Sender: FDA-Public Use
  Company Number: CN-ABBVIE-5732519

PATIENT
  Sex: Male
  Weight: 56 kg

DRUGS (1)
  1. RINVOQ [Suspect]
     Active Substance: UPADACITINIB
     Indication: Vitiligo
     Route: 048
     Dates: start: 20240105, end: 20240410

REACTIONS (9)
  - Cardiomyopathy [Recovering/Resolving]
  - Electrocardiogram abnormal [Recovering/Resolving]
  - Sinus bradycardia [Recovering/Resolving]
  - Vitiligo [Unknown]
  - Dizziness [Recovered/Resolved]
  - Fatigue [Recovered/Resolved]
  - Hyperlipidaemia [Unknown]
  - Autoimmune thyroiditis [Unknown]
  - Hypothyroidism [Unknown]

NARRATIVE: CASE EVENT DATE: 20240101
